FAERS Safety Report 9397860 (Version 1)
Quarter: 2013Q3

REPORT INFORMATION
  Report Type: Spontaneous
  Country: FR (occurrence: FR)
  Receive Date: 20130712
  Receipt Date: 20130712
  Transmission Date: 20140515
  Serious: Yes (Hospitalization)
  Sender: FDA-Public Use
  Company Number: FR-PFIZER INC-2013197484

PATIENT
  Age: 53 Year
  Sex: Male

DRUGS (8)
  1. SALAZOPYRINE [Suspect]
     Dosage: 500 MG, 4X/DAY
     Route: 048
  2. DOLIPRANE [Suspect]
     Dosage: UNK
     Dates: end: 201305
  3. BI-PROFENID [Concomitant]
     Dosage: 1 DF, 1X/DAY
  4. ACTISKENAN [Concomitant]
     Dosage: 20 MG, EVERY 4 HOURS
     Dates: start: 20130522
  5. COLCHIMAX [Concomitant]
     Dosage: UNK
     Dates: start: 20130528
  6. CEFPODOXIME [Concomitant]
     Dosage: UNK
     Dates: start: 20130507, end: 20130512
  7. CO-TRIMOXAZOLE [Concomitant]
     Dosage: UNK
     Dates: start: 20130514, end: 20130520
  8. ROXITHROMYCIN [Concomitant]
     Dosage: UNK
     Dates: start: 20130521, end: 20130526

REACTIONS (2)
  - Cholestasis [Recovering/Resolving]
  - Cell death [Recovering/Resolving]
